FAERS Safety Report 8413821-5 (Version None)
Quarter: 2012Q2

REPORT INFORMATION
  Report Type: 
  Country: None (occurrence: None)
  Receive Date: 20120605
  Receipt Date: 20120531
  Transmission Date: 20120825
  Serious: Yes (Hospitalization, Other)
  Sender: FDA-Public Use
  Company Number: US-MERCK-1205USA05471

PATIENT
  Sex: Male
  Weight: 83 kg

DRUGS (2)
  1. DECADRON [Suspect]
     Indication: CHRONIC LYMPHOCYTIC LEUKAEMIA
     Route: 048
     Dates: start: 20120330, end: 20120402
  2. DECADRON [Suspect]
     Indication: LYMPHADENOPATHY
     Route: 048
     Dates: start: 20120330, end: 20120402

REACTIONS (2)
  - RENAL FAILURE ACUTE [None]
  - URATE NEPHROPATHY [None]
